FAERS Safety Report 9795794 (Version 2)
Quarter: 2014Q1

REPORT INFORMATION
  Report Type: Spontaneous
  Country: JP (occurrence: JP)
  Receive Date: 20140103
  Receipt Date: 20140103
  Transmission Date: 20141002
  Serious: Yes (Hospitalization, Other)
  Sender: FDA-Public Use
  Company Number: JP-BAYER-2013-156069

PATIENT
  Age: 83 Year
  Sex: Female

DRUGS (4)
  1. ACETYLSALICYLIC ACID({=100 MG) [Suspect]
     Indication: ANGINA PECTORIS
     Dosage: UNK
     Route: 048
     Dates: end: 2013
  2. ACETYLSALICYLIC ACID({=100 MG) [Interacting]
     Indication: ANGINA PECTORIS
     Dosage: UNK
     Dates: start: 2013
  3. WARFARIN POTASSIUM [Interacting]
     Indication: ANGINA PECTORIS
     Dosage: UNK
     Route: 048
     Dates: end: 2013
  4. WARFARIN POTASSIUM [Interacting]
     Indication: ANGINA PECTORIS
     Dosage: UNK
     Dates: start: 2013

REACTIONS (4)
  - Colitis ischaemic [None]
  - Colonic haematoma [None]
  - Large intestinal ulcer [Recovering/Resolving]
  - Labelled drug-drug interaction medication error [None]
